FAERS Safety Report 5014018-1 (Version None)
Quarter: 2006Q2

REPORT INFORMATION
  Report Type: 
  Country: None (occurrence: None)
  Receive Date: 20060414
  Receipt Date: 20060128
  Transmission Date: 20061013
  Serious: No
  Sender: FDA-Public Use
  Company Number: 2006SP000509

PATIENT
  Age: 65 Year
  Sex: Female
  Weight: 65.7716 kg

DRUGS (1)
  1. LUNESTA [Suspect]
     Indication: SLEEP DISORDER
     Dosage: 2 MG; ORAL
     Route: 048
     Dates: start: 20050801, end: 20060126

REACTIONS (3)
  - DYSGEUSIA [None]
  - GLOSSODYNIA [None]
  - STOMACH DISCOMFORT [None]
